FAERS Safety Report 22027967 (Version 2)
Quarter: 2023Q1

REPORT INFORMATION
  Report Type: Spontaneous
  Country: FR (occurrence: FR)
  Receive Date: 20230223
  Receipt Date: 20230306
  Transmission Date: 20230418
  Serious: Yes (Other)
  Sender: FDA-Public Use
  Company Number: FR-INCYTE CORPORATION-2023IN001056

PATIENT
  Age: 20 Year

DRUGS (2)
  1. LENALIDOMIDE [Suspect]
     Active Substance: LENALIDOMIDE
     Indication: Acute promyelocytic leukaemia
     Dosage: 5L
     Route: 065
  2. TAFASITAMAB [Suspect]
     Active Substance: TAFASITAMAB
     Indication: Acute promyelocytic leukaemia
     Dosage: 5L
     Route: 065

REACTIONS (4)
  - Acute promyelocytic leukaemia [Unknown]
  - Primary mediastinal large B-cell lymphoma [Unknown]
  - Disease progression [Unknown]
  - Off label use [Unknown]
